FAERS Safety Report 4311027-2 (Version None)
Quarter: 2004Q1

REPORT INFORMATION
  Report Type: 
  Country: None (occurrence: None)
  Receive Date: 20040302
  Receipt Date: 20040302
  Transmission Date: 20041129
  Serious: Yes (Other)
  Sender: FDA-Public Use
  Company Number: None

PATIENT
  Age: 28 Year
  Sex: Female

DRUGS (1)
  1. KY WARMING LIQUIED [Suspect]
     Indication: DERMATITIS CONTACT
     Dosage: 2 CC ONCE VAGINAL
     Route: 067
     Dates: start: 20040228, end: 20040229

REACTIONS (3)
  - APPLICATION SITE DERMATITIS [None]
  - HYPERSENSITIVITY [None]
  - VAGINAL DISORDER [None]
